FAERS Safety Report 11366152 (Version 1)
Quarter: 2015Q3

REPORT INFORMATION
  Report Type: Spontaneous
  Country: FR (occurrence: FR)
  Receive Date: 20150811
  Receipt Date: 20150811
  Transmission Date: 20151125
  Serious: Yes (Death, Hospitalization, Other)
  Sender: FDA-Public Use
  Company Number: FR-BAUSCH-BL-2015-018619

PATIENT
  Age: 26 Year
  Sex: Male

DRUGS (1)
  1. DOXYCYCLINE. [Suspect]
     Active Substance: DOXYCYCLINE
     Indication: MALARIA PROPHYLAXIS
     Route: 065
     Dates: start: 2014

REACTIONS (5)
  - Renal failure [Unknown]
  - Drug ineffective [Unknown]
  - Death [Fatal]
  - Plasmodium falciparum infection [Unknown]
  - Brain oedema [Unknown]

NARRATIVE: CASE EVENT DATE: 2014
